FAERS Safety Report 9208860 (Version 1)
Quarter: 2013Q1

REPORT INFORMATION
  Report Type: Spontaneous
  Country: US (occurrence: None)
  Receive Date: 20120817
  Receipt Date: 20120817
  Transmission Date: 20140127
  Serious: Yes (Other)
  Sender: FDA-Public Use
  Company Number: 201110794

PATIENT
  Age: 55 Year
  Sex: Female

DRUGS (1)
  1. LIORESAL INTRATHECAL (BACLOFEN INJECTION)2000MCG/ML [Suspect]
     Indication: MUSCLE SPASTICITY
     Route: 037

REACTIONS (3)
  - Drug withdrawal syndrome [None]
  - Pruritus [None]
  - Tongue spasm [None]
